FAERS Safety Report 9065016 (Version 1)
Quarter: 2013Q1

REPORT INFORMATION
  Report Type: Spontaneous
  Country: EC (occurrence: EC)
  Receive Date: 20130206
  Receipt Date: 20130206
  Transmission Date: 20140127
  Serious: Yes (Death)
  Sender: FDA-Public Use
  Company Number: EC-BAYER-2013-011786

PATIENT
  Age: 11 Year
  Sex: Male

DRUGS (1)
  1. NAPROXEN [Suspect]
     Indication: ANALGESIC THERAPY
     Route: 048

REACTIONS (1)
  - Death [Fatal]
